FAERS Safety Report 17874861 (Version 1)
Quarter: 2020Q2

REPORT INFORMATION
  Report Type: Spontaneous
  Country: US (occurrence: US)
  Receive Date: 20200608
  Receipt Date: 20200608
  Transmission Date: 20200714
  Serious: Yes (Disabling)
  Sender: FDA-Public Use
  Company Number: None

PATIENT
  Age: 70 Year
  Sex: Female
  Weight: 83.25 kg

DRUGS (8)
  1. GLUCOSAMINE/CHONDROTIN [Concomitant]
     Active Substance: CHONDROITIN SULFATE (BOVINE)\GLUCOSAMINE SULFATE
  2. B2 [Concomitant]
  3. FLUOROURACIL CREAM, USP 5% [Suspect]
     Active Substance: FLUOROURACIL
     Indication: SKIN DISORDER
     Route: 061
     Dates: start: 20191101, end: 20191113
  4. COQ10 [Concomitant]
     Active Substance: UBIDECARENONE
  5. BABY ASPRIN [Concomitant]
     Active Substance: ASPIRIN
  6. ONE DAY WOMEN^S GUMMY MULTI-VITAMIN [Concomitant]
  7. MAGNESIUM [Concomitant]
     Active Substance: MAGNESIUM
  8. TRESIBA [Concomitant]
     Active Substance: INSULIN DEGLUDEC

REACTIONS (3)
  - Erythema [None]
  - Pain [None]
  - Skin ulcer [None]

NARRATIVE: CASE EVENT DATE: 20191101
